FAERS Safety Report 18851140 (Version 1)
Quarter: 2021Q1

REPORT INFORMATION
  Report Type: Spontaneous
  Country: US (occurrence: US)
  Receive Date: 20210205
  Receipt Date: 20210205
  Transmission Date: 20210420
  Serious: Yes (Hospitalization, Other)
  Sender: FDA-Public Use
  Company Number: US-LUPIN PHARMACEUTICALS INC.-2021-01142

PATIENT
  Age: 89 Year
  Sex: Male

DRUGS (6)
  1. OXYCODONE AND ACETAMINOPHEN TABLETS 10 MG/325 MG [Suspect]
     Active Substance: ACETAMINOPHEN\OXYCODONE HYDROCHLORIDE
     Indication: PAIN MANAGEMENT
     Dosage: 1 DOSAGE FORM, EVERY 6 HOURS
     Route: 048
  2. ACICLOVIR [Suspect]
     Active Substance: ACYCLOVIR
     Indication: HERPES ZOSTER
     Dosage: 800 MILLIGRAM, 5 TIMES DAILY
     Route: 048
  3. GABAPENTIN. [Suspect]
     Active Substance: GABAPENTIN
     Indication: HERPES ZOSTER
     Dosage: 300 MILLIGRAM, TID
     Route: 048
  4. ACICLOVIR [Suspect]
     Active Substance: ACYCLOVIR
     Dosage: UNK (DOSE REDUCED)
     Route: 048
  5. GABAPENTIN. [Suspect]
     Active Substance: GABAPENTIN
     Dosage: UNK (DOSE REDUCED)
     Route: 048
  6. SODIUM PHOSPHATE [Concomitant]
     Active Substance: SODIUM PHOSPHATE
     Indication: CONSTIPATION
     Dosage: UNK
     Route: 065

REACTIONS (4)
  - Hip fracture [Unknown]
  - Incorrect dose administered [Unknown]
  - Fall [Unknown]
  - Constipation [Unknown]
